FAERS Safety Report 4667659-5 (Version None)
Quarter: 2005Q2

REPORT INFORMATION
  Report Type: 
  Country: None (occurrence: None)
  Receive Date: 20050519
  Receipt Date: 20050519
  Transmission Date: 20051028
  Serious: Yes (Hospitalization)
  Sender: FDA-Public Use
  Company Number: None

PATIENT
  Age: 60 Year
  Sex: Male
  Weight: 94 kg

DRUGS (25)
  1. LISINOPRIL [Suspect]
     Indication: HYPERTENSION
     Dosage: 10 MG QHS ORAL
     Route: 048
     Dates: start: 20031003, end: 20040120
  2. ALBUTEROL [Concomitant]
  3. BACLOFEN [Concomitant]
  4. BENZOYL [Concomitant]
  5. PEROXINE [Concomitant]
  6. BISACODYL [Concomitant]
  7. RTL [Concomitant]
  8. CLONDINE HCL [Concomitant]
  9. DESMOPRESSIN [Concomitant]
  10. DIAZEPAM [Concomitant]
  11. FLUNISOLIDE [Concomitant]
  12. GABAPENTIN [Concomitant]
  13. HYDROCHLOROTHIAZIDE [Concomitant]
  14. IPRATROPIUM BR [Concomitant]
  15. KETOCONAZOLE [Concomitant]
  16. LORATADINE [Concomitant]
  17. METRONIDAZOLE [Concomitant]
  18. NIACIN-1IASPAN-KOS- [Concomitant]
  19. SENNOSIDES [Concomitant]
  20. SERTRA;OME JC; [Concomitant]
  21. SIMVASTATIN [Concomitant]
  22. TERAZOSIN HCL [Concomitant]
  23. TESTOSTERONE ENANTHATE [Concomitant]
  24. TIZANIDINE HCL [Concomitant]
  25. COUMADIN [Concomitant]

REACTIONS (3)
  - DYSPHAGIA [None]
  - OEDEMA PERIPHERAL [None]
  - SWELLING FACE [None]
